FAERS Safety Report 20917796 (Version 3)
Quarter: 2022Q4

REPORT INFORMATION
  Report Type: Spontaneous
  Country: GB (occurrence: GB)
  Receive Date: 20220606
  Receipt Date: 20221221
  Transmission Date: 20230112
  Serious: Yes (Other)
  Sender: FDA-Public Use
  Company Number: GB-NOVARTISPH-NVSC2022GB126827

PATIENT
  Age: 55 Year
  Sex: Female

DRUGS (2)
  1. METHOTREXATE [Suspect]
     Active Substance: METHOTREXATE
     Indication: Product used for unknown indication
     Dosage: UNK
     Route: 065
  2. ETANERCEPT [Suspect]
     Active Substance: ETANERCEPT
     Indication: Rheumatoid arthritis
     Dosage: 50 MG, QW
     Route: 058
     Dates: start: 20220204

REACTIONS (12)
  - Rheumatoid arthritis [Not Recovered/Not Resolved]
  - Poor quality sleep [Not Recovered/Not Resolved]
  - Abdominal distension [Unknown]
  - White blood cell count increased [Unknown]
  - Injection site bruising [Unknown]
  - Rash [Unknown]
  - Pruritus [Unknown]
  - Paraesthesia oral [Unknown]
  - Eye irritation [Unknown]
  - White blood cell count decreased [Unknown]
  - Alopecia [Unknown]
  - Fatigue [Unknown]
